FAERS Safety Report 10930861 (Version 1)
Quarter: 2015Q1

REPORT INFORMATION
  Report Type: Spontaneous
  Country: US (occurrence: US)
  Receive Date: 20150319
  Receipt Date: 20150319
  Transmission Date: 20150721
  Serious: No
  Sender: FDA-Public Use
  Company Number: US-BAUSCH-BL-2014-004291

PATIENT
  Age: 69 Year
  Sex: Female

DRUGS (2)
  1. CERAVE HYDRATING CLEANSER [Suspect]
     Active Substance: SALICYLIC ACID
     Indication: PRODUCT USED FOR UNKNOWN INDICATION
     Route: 061
     Dates: start: 201408
  2. RETIN-A [Suspect]
     Active Substance: TRETINOIN
     Indication: PRODUCT USED FOR UNKNOWN INDICATION
     Dosage: ONCE IN A WHILE
     Route: 061

REACTIONS (2)
  - Skin exfoliation [Unknown]
  - Application site pain [Unknown]

NARRATIVE: CASE EVENT DATE: 20140821
